FAERS Safety Report 20290574 (Version 2)
Quarter: 2022Q1

REPORT INFORMATION
  Report Type: Spontaneous
  Country: CA (occurrence: CA)
  Receive Date: 20220104
  Receipt Date: 20220107
  Transmission Date: 20220424
  Serious: Yes (Life-Threatening, Other)
  Sender: FDA-Public Use
  Company Number: CA-PFIZER INC-202101826220

PATIENT
  Age: 61 Year
  Sex: Female

DRUGS (3)
  1. PALBOCICLIB [Suspect]
     Active Substance: PALBOCICLIB
     Indication: Breast cancer female
     Dosage: UNK
     Dates: start: 20200803, end: 20200824
  2. LETROZOLE [Concomitant]
     Active Substance: LETROZOLE
     Indication: Breast cancer female
     Dosage: UNK
     Dates: start: 201205, end: 201803
  3. LETROZOLE [Concomitant]
     Active Substance: LETROZOLE
     Dosage: UNK
     Dates: start: 20200803

REACTIONS (2)
  - Hepatitis [Recovered/Resolved]
  - Drug-induced liver injury [Unknown]

NARRATIVE: CASE EVENT DATE: 20200101
